FAERS Safety Report 9470624 (Version 2)
Quarter: 2013Q3

REPORT INFORMATION
  Report Type: Spontaneous
  Country: US (occurrence: US)
  Receive Date: 20130822
  Receipt Date: 20130822
  Transmission Date: 20140515
  Serious: No
  Sender: FDA-Public Use
  Company Number: US-PFIZER INC-US-WYE-H13485910

PATIENT
  Age: 74 Year
  Sex: Male
  Weight: 70.3 kg

DRUGS (10)
  1. RAPAMUNE [Suspect]
     Indication: PROPHYLAXIS AGAINST TRANSPLANT REJECTION
     Dosage: ALTERNATE 2MG AND 3MG DAILY
     Route: 048
     Dates: start: 20100125
  2. RAPAMUNE [Suspect]
     Dosage: UNK
     Route: 048
  3. ACETYLSALICYLIC ACID [Concomitant]
     Dosage: UNK
  4. CICLOSPORIN A [Concomitant]
     Dosage: UNK
  5. VITAMIN D [Concomitant]
     Dosage: UNK
  6. FISH OIL, HYDROGENATED [Concomitant]
     Dosage: UNK
  7. INSULIN [Concomitant]
     Dosage: UNK
  8. LEVOTHYROXINE [Concomitant]
     Dosage: UNK
  9. SIMVASTATIN [Concomitant]
     Dosage: UNK
  10. MULTIVIT [Concomitant]
     Dosage: UNK

REACTIONS (3)
  - Blood glucose increased [Unknown]
  - Low density lipoprotein increased [Unknown]
  - Off label use [Unknown]
